FAERS Safety Report 24935458 (Version 2)
Quarter: 2025Q1

REPORT INFORMATION
  Report Type: Other
  Country: RO (occurrence: RO)
  Receive Date: 20250206
  Receipt Date: 20250312
  Transmission Date: 20250408
  Serious: Yes (Hospitalization, Other)
  Sender: Steriscience PTE
  Company Number: RO-MEDO2008-001850

PATIENT
  Age: 71 Year
  Sex: Male

DRUGS (1)
  1. MEROPENEM [Suspect]
     Active Substance: MEROPENEM
     Indication: Pneumonia
     Route: 042

REACTIONS (3)
  - Psychomotor hyperactivity [None]
  - Condition aggravated [Unknown]
  - Rash maculo-papular [None]
